FAERS Safety Report 5819541-5 (Version None)
Quarter: 2008Q3

REPORT INFORMATION
  Report Type: 
  Country: None (occurrence: None)
  Receive Date: 20080723
  Receipt Date: 20080715
  Transmission Date: 20090109
  Serious: Yes (Other)
  Sender: FDA-Public Use
  Company Number: ES-ELI_LILLY_AND_COMPANY-ES200807003308

PATIENT
  Age: 76 Year
  Sex: Female

DRUGS (1)
  1. FORTEO [Suspect]
     Indication: KNEE ARTHROPLASTY
     Dosage: 20 UG, UNKNOWN
     Route: 058
     Dates: start: 20070528

REACTIONS (1)
  - ENDOMETRIAL ADENOMA [None]
